FAERS Safety Report 4950188-9 (Version None)
Quarter: 2006Q1

REPORT INFORMATION
  Report Type: 
  Country: None (occurrence: None)
  Receive Date: 20060316
  Receipt Date: 20060301
  Transmission Date: 20060701
  Serious: Yes (Hospitalization)
  Sender: FDA-Public Use
  Company Number: SERX20060003

PATIENT
  Age: 82 Year
  Sex: Female

DRUGS (8)
  1. OXAZEPAM [Suspect]
     Dosage: 1 1/2 TABS DAILY PO
     Route: 048
  2. TENORMIN [Suspect]
     Dosage: 1 TAB DAILY PO
     Route: 048
  3. PRAVASTATIN [Suspect]
     Dosage: 40 MG PER DAY PO
     Route: 048
  4. RABEPRAZOLE SODIUM [Suspect]
     Dosage: 1 TAB DAILY PO
     Route: 048
  5. ALDACTAZINE (ALTIZIDE/SPIRONOLACTONE) [Suspect]
     Dosage: 1 1/2 TABS PER DAY PO
     Route: 048
  6. KARDEGIC (ACETYLSALICYLATE LYSINE) 75 MG [Suspect]
     Dosage: 75 MG DAILY PO
     Route: 048
  7. CETIRIZINE HCL [Concomitant]
  8. SOLUPRED [Concomitant]

REACTIONS (2)
  - PEMPHIGOID [None]
  - POST PROCEDURAL COMPLICATION [None]
